FAERS Safety Report 7987941-3 (Version None)
Quarter: 2011Q4

REPORT INFORMATION
  Report Type: 
  Country: None (occurrence: None)
  Receive Date: 20111216
  Receipt Date: 20101118
  Transmission Date: 20120403
  Serious: No
  Sender: FDA-Public Use
  Company Number: US-BRISTOL-MYERS SQUIBB COMPANY-15398456

PATIENT
  Age: 64 Year
  Sex: Female

DRUGS (2)
  1. ABILIFY [Suspect]
     Dosage: 1DF:5MG OR 10MG ONGOING
  2. CELEXA [Concomitant]

REACTIONS (1)
  - TARDIVE DYSKINESIA [None]
